FAERS Safety Report 15108383 (Version 4)
Quarter: 2021Q3

REPORT INFORMATION
  Report Type: Spontaneous
  Country: CA (occurrence: CA)
  Receive Date: 20180705
  Receipt Date: 20210930
  Transmission Date: 20211014
  Serious: Yes (Hospitalization, Other)
  Sender: FDA-Public Use
  Company Number: CA-BIOVITRUM-2018CA0722

PATIENT
  Age: 50 Year
  Sex: Female

DRUGS (21)
  1. ILARIS [Suspect]
     Active Substance: CANAKINUMAB
     Route: 058
  2. ILARIS [Suspect]
     Active Substance: CANAKINUMAB
     Route: 058
  3. ILARIS [Suspect]
     Active Substance: CANAKINUMAB
     Route: 058
  4. ILARIS [Suspect]
     Active Substance: CANAKINUMAB
     Route: 058
  5. ILARIS [Suspect]
     Active Substance: CANAKINUMAB
     Route: 065
  6. ILARIS [Suspect]
     Active Substance: CANAKINUMAB
     Route: 058
  7. ILARIS [Suspect]
     Active Substance: CANAKINUMAB
     Route: 058
  8. ILARIS [Suspect]
     Active Substance: CANAKINUMAB
     Route: 058
  9. ANAKINRA [Suspect]
     Active Substance: ANAKINRA
     Indication: FAMILIAL MEDITERRANEAN FEVER
  10. ILARIS [Suspect]
     Active Substance: CANAKINUMAB
     Route: 058
  11. ILARIS [Suspect]
     Active Substance: CANAKINUMAB
     Route: 058
  12. ILARIS [Suspect]
     Active Substance: CANAKINUMAB
     Route: 065
  13. ILARIS [Suspect]
     Active Substance: CANAKINUMAB
     Route: 065
  14. ILARIS [Suspect]
     Active Substance: CANAKINUMAB
     Route: 058
  15. ILARIS [Suspect]
     Active Substance: CANAKINUMAB
     Route: 058
  16. ILARIS [Suspect]
     Active Substance: CANAKINUMAB
     Indication: FAMILIAL MEDITERRANEAN FEVER
     Route: 058
  17. ILARIS [Suspect]
     Active Substance: CANAKINUMAB
     Route: 058
  18. ILARIS [Suspect]
     Active Substance: CANAKINUMAB
     Route: 058
  19. ILARIS [Suspect]
     Active Substance: CANAKINUMAB
     Route: 065
  20. ILARIS [Suspect]
     Active Substance: CANAKINUMAB
     Route: 058
  21. ILARIS [Suspect]
     Active Substance: CANAKINUMAB
     Route: 058

REACTIONS (30)
  - Urinary tract infection [Not Recovered/Not Resolved]
  - Hypersensitivity [Not Recovered/Not Resolved]
  - Blood pressure increased [Not Recovered/Not Resolved]
  - Feeling hot [Not Recovered/Not Resolved]
  - Restless legs syndrome [Not Recovered/Not Resolved]
  - Abdominal pain upper [Not Recovered/Not Resolved]
  - Eye infection [Not Recovered/Not Resolved]
  - Wrong technique in product usage process [Not Recovered/Not Resolved]
  - Abdominal pain [Not Recovered/Not Resolved]
  - Eyelid thickening [Not Recovered/Not Resolved]
  - Pyrexia [Not Recovered/Not Resolved]
  - Lip pruritus [Not Recovered/Not Resolved]
  - Pruritus [Not Recovered/Not Resolved]
  - Arthralgia [Not Recovered/Not Resolved]
  - Arthritis [Not Recovered/Not Resolved]
  - Discomfort [Not Recovered/Not Resolved]
  - Pain in extremity [Not Recovered/Not Resolved]
  - Mouth swelling [Not Recovered/Not Resolved]
  - Secondary amyloidosis [Not Recovered/Not Resolved]
  - Hepatic cirrhosis [Not Recovered/Not Resolved]
  - Therapeutic response decreased [Not Recovered/Not Resolved]
  - Amyloidosis [Not Recovered/Not Resolved]
  - Fatigue [Not Recovered/Not Resolved]
  - SARS-CoV-2 test positive [Not Recovered/Not Resolved]
  - Inappropriate schedule of product administration [Not Recovered/Not Resolved]
  - Abdominal distension [Not Recovered/Not Resolved]
  - Feeling abnormal [Not Recovered/Not Resolved]
  - Fibromyalgia [Not Recovered/Not Resolved]
  - Viral infection [Not Recovered/Not Resolved]
  - Stress [Not Recovered/Not Resolved]
